FAERS Safety Report 5498121-8 (Version None)
Quarter: 2007Q4

REPORT INFORMATION
  Report Type: 
  Country: None (occurrence: None)
  Receive Date: 20071025
  Receipt Date: 20071024
  Transmission Date: 20080405
  Serious: No
  Sender: FDA-Public Use
  Company Number: US-BOEHRINGER INGELHEIM PHARMACEUTICALS, INC.-2007-BP-23295BP

PATIENT
  Age: 81 Year
  Sex: Male

DRUGS (3)
  1. ZANTAC COOL MINT (TABLETS) [Suspect]
     Indication: DYSPEPSIA
     Route: 048
     Dates: start: 20071020
  2. ZANTAC COOL MINT (TABLETS) [Suspect]
  3. HYTRIN [Concomitant]

REACTIONS (1)
  - DRUG EFFECT DECREASED [None]
